FAERS Safety Report 9745952 (Version 1)
Quarter: 2013Q4

REPORT INFORMATION
  Report Type: Spontaneous
  Country: DE (occurrence: DE)
  Receive Date: 20131211
  Receipt Date: 20131211
  Transmission Date: 20140711
  Serious: Yes (Other)
  Sender: FDA-Public Use
  Company Number: DE-VERTEX PHARMACEUTICALS INC-2013-011710

PATIENT
  Sex: 0

DRUGS (3)
  1. INCIVO [Suspect]
     Indication: HEPATITIS C
     Route: 048
  2. PEGINTERFERON ALFA-2A [Suspect]
     Indication: HEPATITIS C
     Dosage: DOSAGE FORM: INJECTION
     Route: 058
  3. RIBAVIRIN [Suspect]
     Indication: HEPATITIS C
     Dosage: DOSAGE FORM: TABLET
     Route: 048

REACTIONS (3)
  - Anaemia [Unknown]
  - Rash [Unknown]
  - Drug ineffective [Unknown]
